FAERS Safety Report 4712686-2 (Version None)
Quarter: 2005Q3

REPORT INFORMATION
  Report Type: 
  Country: None (occurrence: None)
  Receive Date: 20050701
  Receipt Date: 20050502
  Transmission Date: 20060218
  Serious: Yes (Other)
  Sender: FDA-Public Use
  Company Number: 2005070060

PATIENT
  Age: 35 Year
  Sex: Female

DRUGS (5)
  1. ZOLOFT [Suspect]
     Indication: DEPRESSION
     Dosage: 25 MG (25 MG, 1 IN 1 D), ORAL
     Route: 048
     Dates: start: 20041101
  2. GABAPENTIN (GAAPENTIN) [Concomitant]
  3. LEVETIRACETAM [Concomitant]
  4. CLONAZEPAM [Concomitant]
  5. CARBAMAZEPINE (CARAMAZEPINE) [Concomitant]

REACTIONS (5)
  - DEPRESSION [None]
  - NIGHTMARE [None]
  - POOR QUALITY SLEEP [None]
  - SOMNOLENCE [None]
  - WEIGHT DECREASED [None]
